FAERS Safety Report 15265045 (Version 1)
Quarter: 2018Q3

REPORT INFORMATION
  Report Type: Spontaneous
  Country: US (occurrence: US)
  Receive Date: 20180810
  Receipt Date: 20180810
  Transmission Date: 20181010
  Serious: Yes (Other)
  Sender: FDA-Public Use
  Company Number: US-TARO PHARMACEUTICALS USA.,INC-2018SUN00409

PATIENT
  Age: 46 Year
  Sex: Male

DRUGS (2)
  1. CLOBETASOL PROPIONATE CREAM USP, 0.05% [Suspect]
     Active Substance: CLOBETASOL PROPIONATE
     Indication: PSORIASIS
     Dosage: UNK
     Route: 061
  2. BROMOCRIPTINE [Concomitant]
     Active Substance: BROMOCRIPTINE
     Indication: BLOOD PROLACTIN INCREASED
     Dosage: 5 MG, UNK
     Route: 065

REACTIONS (2)
  - Primary hypogonadism [Unknown]
  - Adrenal insufficiency [Unknown]
